FAERS Safety Report 24781295 (Version 1)
Quarter: 2024Q4

REPORT INFORMATION
  Report Type: Spontaneous
  Country: US (occurrence: US)
  Receive Date: 20241227
  Receipt Date: 20241227
  Transmission Date: 20250114
  Serious: No
  Sender: CELLTRION
  Company Number: US-CELLTRION INC.-2024US010103

PATIENT

DRUGS (5)
  1. TRUXIMA [Suspect]
     Active Substance: RITUXIMAB-ABBS
     Indication: Optic neuritis
     Dosage: 2 INFUSIONS 2 WEEKS APART
     Dates: start: 20231221
  2. TRUXIMA [Suspect]
     Active Substance: RITUXIMAB-ABBS
     Indication: Optic neuritis
     Dosage: 2 INFUSIONS 2 WEEKS APART
     Dates: start: 20240104
  3. PREDNISONE [Concomitant]
     Active Substance: PREDNISONE
     Indication: Optic neuritis
     Dosage: 1000MG DAILY FOR 3 DAYS
     Dates: start: 202308
  4. PREDNISONE [Concomitant]
     Active Substance: PREDNISONE
     Indication: Optic neuritis
     Dosage: DAILY
  5. PREDNISONE [Concomitant]
     Active Substance: PREDNISONE
     Dosage: 40 MG, DAILY

REACTIONS (1)
  - Drug ineffective for unapproved indication [Not Recovered/Not Resolved]

NARRATIVE: CASE EVENT DATE: 20231221
